FAERS Safety Report 7512105-7 (Version None)
Quarter: 2011Q2

REPORT INFORMATION
  Report Type: 
  Country: None (occurrence: None)
  Receive Date: 20110519
  Receipt Date: 20110505
  Transmission Date: 20111010
  Serious: Yes (Hospitalization)
  Sender: FDA-Public Use
  Company Number: 1000020921

PATIENT
  Age: 68 Year
  Sex: Female

DRUGS (4)
  1. DIOVAN [Suspect]
     Indication: HYPERTENSION
     Dosage: 160 MG (160 MG, 1 IN 1 D),ORAL
     Route: 048
     Dates: start: 20070101, end: 20110308
  2. ESCITALOPRAM [Suspect]
     Indication: DEPRESSION
     Dosage: 30 MG (15 MG,2 IN 1 D),ORAL
     Route: 048
     Dates: start: 20110201, end: 20110302
  3. HYDROCHLOROTHIAZDE TAB [Suspect]
     Indication: HYPERTENSION
     Dosage: 50 MG (50 MG, 1 IN 1 D),ORAL
     Route: 048
     Dates: start: 20070101, end: 20110308
  4. ATENOLOL [Concomitant]

REACTIONS (1)
  - HYPONATRAEMIA [None]
